FAERS Safety Report 6880755-7 (Version None)
Quarter: 2010Q3

REPORT INFORMATION
  Report Type: 
  Country: None (occurrence: None)
  Receive Date: 20100728
  Receipt Date: 20100617
  Transmission Date: 20110219
  Serious: No
  Sender: FDA-Public Use
  Company Number: US-BAXTER-2010BH003446

PATIENT
  Age: 51 Year
  Sex: Female
  Weight: 88 kg

DRUGS (7)
  1. HEPARIN SODIUM [Suspect]
     Indication: CARDIAC OPERATION
     Route: 042
     Dates: start: 20080416, end: 20080424
  2. HEPARIN SODIUM [Suspect]
     Route: 058
     Dates: start: 20080416, end: 20080424
  3. HEPARIN SODIUM [Suspect]
     Route: 042
     Dates: start: 20080424, end: 20080424
  4. NEXIUM [Concomitant]
     Indication: PRODUCT USED FOR UNKNOWN INDICATION
     Route: 065
  5. LIPITOR [Concomitant]
     Indication: PRODUCT USED FOR UNKNOWN INDICATION
     Route: 065
  6. HYZAAR [Concomitant]
     Indication: PRODUCT USED FOR UNKNOWN INDICATION
     Route: 065
  7. TOPROL-XL [Concomitant]
     Indication: PRODUCT USED FOR UNKNOWN INDICATION
     Route: 065

REACTIONS (6)
  - ASTHENIA [None]
  - DEPRESSION [None]
  - DIZZINESS [None]
  - HEADACHE [None]
  - NAUSEA [None]
  - VOMITING [None]
